FAERS Safety Report 4830158-1 (Version None)
Quarter: 2005Q4

REPORT INFORMATION
  Report Type: 
  Country: None (occurrence: None)
  Receive Date: 20051115
  Receipt Date: 20051115
  Transmission Date: 20060501
  Serious: Yes (Hospitalization)
  Sender: FDA-Public Use
  Company Number: None

PATIENT
  Age: 80 Year
  Sex: Male
  Weight: 72.5755 kg

DRUGS (5)
  1. MORPHINE [Suspect]
     Indication: PAIN
     Dosage: 5 MG PRN IN PACU AND DLA 1 MG/ML
     Dates: start: 20050803
  2. PRILOSEC [Concomitant]
  3. ATENOLOL [Concomitant]
  4. MULTI-VITAMIN [Concomitant]
  5. SPINAL ANESTHESIA [Concomitant]

REACTIONS (1)
  - SEDATION [None]
